FAERS Safety Report 4727069-9 (Version None)
Quarter: 2005Q3

REPORT INFORMATION
  Report Type: 
  Country: None (occurrence: None)
  Receive Date: 20050726
  Receipt Date: 20050726
  Transmission Date: 20060218
  Serious: Yes (Hospitalization)
  Sender: FDA-Public Use
  Company Number: None

PATIENT
  Age: 91 Year
  Sex: Male
  Weight: 59 kg

DRUGS (21)
  1. METRONIDAZOLE [Suspect]
  2. FLUOCINOLONE ACETONIDE [Concomitant]
  3. ZINC OXIDE [Concomitant]
  4. CALAMINE LOTION [Concomitant]
  5. SODIUM LACTATE 5%/UREA 5% [Concomitant]
  6. CARRINGTON MOIST BARRIER CR W/ZINC [Concomitant]
  7. ENALAPRIL [Concomitant]
  8. ALGIN AC/ALOH 80/MG TRI 20/NA BICARB [Concomitant]
  9. RISPERIDONE [Concomitant]
  10. LEVOTHYROXINE SODIUM [Concomitant]
  11. SIMVASTATIN [Concomitant]
  12. OMEPRAZOLE [Concomitant]
  13. NITROGLYCERIN [Concomitant]
  14. ASPIRIN [Concomitant]
  15. POLYVINYL ALCOHOL/SODIUM CHLORIDE [Concomitant]
  16. NITROGLYCERIN [Concomitant]
  17. MAGNESIUM HYDROXIDE TAB [Concomitant]
  18. ACETAMINOPHEN [Concomitant]
  19. METOPROLOL [Concomitant]
  20. MULTI-VITAMIN [Concomitant]
  21. AZITHROMYCIN [Concomitant]

REACTIONS (1)
  - RASH [None]
